FAERS Safety Report 8623538-X (Version None)
Quarter: 2012Q3

REPORT INFORMATION
  Report Type: 
  Country: None (occurrence: None)
  Receive Date: 20120827
  Receipt Date: 20120820
  Transmission Date: 20120928
  Serious: Yes (Hospitalization)
  Sender: FDA-Public Use
  Company Number: NL-PFIZER INC-2012204585

PATIENT
  Sex: Female
  Weight: 66.8 kg

DRUGS (8)
  1. GENOTROPIN [Suspect]
     Dosage: 0.3 MG, 7/WK
     Route: 058
     Dates: start: 20040318
  2. CALCIUM CARBONATE [Concomitant]
     Indication: HYPOCALCAEMIA
     Dosage: UNK
     Dates: start: 20001004
  3. LEVOTHYROXINE SODIUM [Concomitant]
     Indication: PRIMARY HYPOTHYROIDISM
  4. HYDROCORTISONE [Concomitant]
     Indication: ADRENAL INSUFFICIENCY
     Dosage: UNK
     Dates: start: 19990325
  5. LEVOTHYROXINE SODIUM [Concomitant]
     Indication: BLOOD THYROID STIMULATING HORMONE DECREASED
     Dosage: UNK
     Dates: start: 19981208
  6. PRASTERONE [Concomitant]
     Dosage: UNK
     Dates: start: 20011004
  7. FLUDROCORTISONE [Concomitant]
     Dosage: UNK
     Dates: start: 19890101
  8. ESTRADIOL [Concomitant]
     Dosage: UNK
     Dates: start: 19981208

REACTIONS (1)
  - ADRENOCORTICAL INSUFFICIENCY ACUTE [None]
